FAERS Safety Report 16036137 (Version 3)
Quarter: 2019Q2

REPORT INFORMATION
  Report Type: Spontaneous
  Country: DE (occurrence: DE)
  Receive Date: 20190305
  Receipt Date: 20190410
  Transmission Date: 20190711
  Serious: Yes (Hospitalization, Disabling, Other)
  Sender: FDA-Public Use
  Company Number: DE-MYLANLABS-2019M1018568

PATIENT
  Age: 52 Year
  Sex: Female

DRUGS (22)
  1. PREDNISOLONE. [Suspect]
     Active Substance: PREDNISOLONE
     Indication: PROPHYLAXIS AGAINST TRANSPLANT REJECTION
     Dosage: TAPERED DOWN TO MAINTENANCE DOSE OF 5 MG/D
     Route: 065
     Dates: end: 201305
  2. TACROLIMUS. [Suspect]
     Active Substance: TACROLIMUS
     Dosage: UNK
     Dates: start: 201306, end: 201308
  3. VALGANCICLOVIR. [Concomitant]
     Active Substance: VALGANCICLOVIR
     Dosage: UNK (FOR 100 DAYS)
     Route: 065
  4. MYCOPHENOLATE MOFETIL. [Suspect]
     Active Substance: MYCOPHENOLATE MOFETIL
     Indication: IMMUNOSUPPRESSION
     Dosage: 2000 MILLIGRAM, QD
     Route: 065
     Dates: end: 201305
  5. FOSCARNET SODIUM. [Suspect]
     Active Substance: FOSCARNET SODIUM
     Indication: ANTIVIRAL PROPHYLAXIS
     Dosage: 180 MILLIGRAM/KILOGRAM, QD
     Route: 065
     Dates: start: 201309
  6. VALGANCICLOVIR. [Concomitant]
     Active Substance: VALGANCICLOVIR
     Dosage: UNK
     Route: 065
     Dates: start: 201312
  7. GANCICLOVIR. [Suspect]
     Active Substance: GANCICLOVIR
     Indication: ANTIVIRAL PROPHYLAXIS
     Dosage: 5 MILLIGRAM/KILOGRAM, QD
     Route: 042
  8. TACROLIMUS. [Suspect]
     Active Substance: TACROLIMUS
     Indication: IMMUNOSUPPRESSION
     Dosage: INITIAL TARGET TROUGH LEVEL 8?10 AND 6?7 NG/MICROLITRES
     Route: 065
     Dates: end: 201305
  9. CASPOFUNGIN [Suspect]
     Active Substance: CASPOFUNGIN
     Indication: PRODUCT USED FOR UNKNOWN INDICATION
     Dosage: UNK
     Route: 065
     Dates: start: 201307
  10. ALEMTUZUMAB [Suspect]
     Active Substance: ALEMTUZUMAB
     Indication: PROPHYLAXIS AGAINST TRANSPLANT REJECTION
  11. GANCICLOVIR. [Suspect]
     Active Substance: GANCICLOVIR
     Indication: ANTIVIRAL PROPHYLAXIS
     Dosage: UNK
     Route: 042
     Dates: start: 201307, end: 201312
  12. VALGANCICLOVIR. [Concomitant]
     Active Substance: VALGANCICLOVIR
     Dosage: 900 MILLIGRAM, QD
     Route: 065
  13. EVEROLIMUS. [Suspect]
     Active Substance: EVEROLIMUS
     Indication: IMMUNOSUPPRESSION
     Dosage: TARGET TROUGH LEVEL 2-3 NG/MICROLITRE
     Dates: start: 201309, end: 201312
  14. PREDNISOLONE. [Suspect]
     Active Substance: PREDNISOLONE
     Dosage: 250 MILLIGRAM, QD
     Route: 065
     Dates: start: 201310, end: 201310
  15. PREDNISOLONE. [Suspect]
     Active Substance: PREDNISOLONE
     Dosage: UNK (FOR 3 DAYS)
     Route: 065
  16. INFLIXIMAB [Suspect]
     Active Substance: INFLIXIMAB
     Indication: IMMUNOSUPPRESSION
     Dosage: 5 MILLIGRAM/KILOGRAM, ONCE
     Route: 042
     Dates: start: 201310
  17. MYCOPHENOLATE MOFETIL. [Suspect]
     Active Substance: MYCOPHENOLATE MOFETIL
     Indication: PROPHYLAXIS AGAINST TRANSPLANT REJECTION
     Dosage: UNK
     Route: 065
  18. VALGANCICLOVIR. [Concomitant]
     Active Substance: VALGANCICLOVIR
     Indication: ANTIVIRAL PROPHYLAXIS
     Dosage: UNK
     Dates: start: 201307
  19. TACROLIMUS. [Suspect]
     Active Substance: TACROLIMUS
     Indication: PROPHYLAXIS AGAINST TRANSPLANT REJECTION
     Dosage: TARGET TROUGH LEVEL 3-4 NG/MICROLITRE
     Route: 065
     Dates: start: 201309, end: 201312
  20. PREDNISOLONE. [Suspect]
     Active Substance: PREDNISOLONE
     Indication: IMMUNOSUPPRESSION
     Dosage: 1000 MILLIGRAM(INTRAOPERATIVELY)
     Route: 065
  21. PREDNISOLONE. [Suspect]
     Active Substance: PREDNISOLONE
     Dosage: 1000 INTERNATIONAL UNIT (INTRAOPERATIVELY)
     Route: 065
  22. ALEMTUZUMAB [Suspect]
     Active Substance: ALEMTUZUMAB
     Indication: IMMUNOSUPPRESSION
     Dosage: 30 MILLIGRAM D 0 AND 1
     Route: 065
     Dates: end: 201305

REACTIONS (8)
  - Cytomegalovirus infection [Recovered/Resolved]
  - Leukaemia [Unknown]
  - Organ failure [Unknown]
  - Cytomegalovirus oesophagitis [Recovered/Resolved]
  - Drug ineffective [Unknown]
  - Oesophageal candidiasis [Recovered/Resolved]
  - Cytomegalovirus gastritis [Unknown]
  - Transplant rejection [Unknown]
